FAERS Safety Report 14172249 (Version 1)
Quarter: 2017Q4

REPORT INFORMATION
  Report Type: Spontaneous
  Country: US (occurrence: None)
  Receive Date: 20171108
  Receipt Date: 20171108
  Transmission Date: 20180321
  Serious: No
  Sender: FDA-Public Use
  Company Number: None

PATIENT
  Sex: Female
  Weight: 90.72 kg

DRUGS (1)
  1. OTEZLA [Suspect]
     Active Substance: APREMILAST
     Indication: PSORIASIS
     Dosage: 1 TAB BID PO
     Route: 048
     Dates: start: 201605

REACTIONS (4)
  - Swelling [None]
  - Arthropod sting [None]
  - Dizziness [None]
  - Influenza immunisation [None]
